FAERS Safety Report 8132886 (Version 3)
Quarter: 2015Q1

REPORT INFORMATION
  Report Type: Spontaneous
  Country: US (occurrence: US)
  Receive Date: 20110913
  Receipt Date: 20150126
  Transmission Date: 20150721
  Serious: Yes (Hospitalization, Disabling, Other)
  Sender: FDA-Public Use
  Company Number: US-BAYER-2011-082394

PATIENT
  Age: 47 Year
  Sex: Female
  Weight: 91 kg

DRUGS (21)
  1. YASMIN [Suspect]
     Active Substance: DROSPIRENONE\ETHINYL ESTRADIOL
     Indication: PREMENSTRUAL DYSPHORIC DISORDER
     Dosage: UNK
     Dates: start: 200411, end: 20050414
  2. YASMIN [Suspect]
     Active Substance: DROSPIRENONE\ETHINYL ESTRADIOL
     Indication: MENSTRUATION IRREGULAR
  3. DARVOCET-N 100 [Concomitant]
     Active Substance: ACETAMINOPHEN\PROPOXYPHENE NAPSYLATE
     Dosage: 1-2 TABS EVERY 4-6 HOURS AS NEEDED
     Route: 048
     Dates: start: 20050411
  4. AVANDIA [Concomitant]
     Active Substance: ROSIGLITAZONE MALEATE
     Indication: DIABETES MELLITUS
  5. ACCUPRIL [Concomitant]
     Active Substance: QUINAPRIL HYDROCHLORIDE
     Indication: BLOOD PRESSURE ABNORMAL
     Dosage: 2.5 MG, QD
  6. PREMARIN [Concomitant]
     Active Substance: ESTROGENS, CONJUGATED
     Dosage: 0.625 MG, UNK
     Route: 067
     Dates: start: 20050111
  7. ESTRACE [Concomitant]
     Active Substance: ESTRADIOL
     Dosage: 0.01 %, UNK
     Route: 067
     Dates: start: 20050111
  8. LEVAQUIN [Concomitant]
     Active Substance: LEVOFLOXACIN
     Dosage: 500 MG, DAILY
     Route: 048
  9. SENOKOT S [DOCUSATE SODIUM,SENNOSIDE A+B] [Concomitant]
  10. DAYPRO [Concomitant]
     Active Substance: OXAPROZIN
     Dosage: 600 MG, DAILY
     Route: 048
     Dates: start: 20041102
  11. TESSALON [Concomitant]
     Active Substance: BENZONATATE
     Dosage: 100 MG, TID
     Route: 048
     Dates: start: 20040227
  12. SINUVENT PE [Concomitant]
     Active Substance: GUAIFENESIN\PHENYLEPHRINE HYDROCHLORIDE
     Dosage: 600-15 MG
     Route: 048
     Dates: start: 20040226
  13. LEXAPRO [Concomitant]
     Active Substance: ESCITALOPRAM OXALATE
     Dosage: 10 MG, DAILY
     Route: 048
     Dates: start: 20031021
  14. ZOCOR [Concomitant]
     Active Substance: SIMVASTATIN
     Dosage: 20 MG, UNK
  15. VESICARE [Concomitant]
     Active Substance: SOLIFENACIN SUCCINATE
     Indication: BLADDER DISORDER
     Dosage: 5 MG DAILY
     Route: 048
     Dates: start: 20050209, end: 200506
  16. VESICARE [Concomitant]
     Active Substance: SOLIFENACIN SUCCINATE
     Indication: MICTURITION URGENCY
  17. VOLTAREN [Concomitant]
     Active Substance: DICLOFENAC SODIUM
     Dosage: 75 MG, UNK
     Route: 048
     Dates: start: 20040426
  18. GLYBURIDE. [Concomitant]
     Active Substance: GLYBURIDE
     Dosage: 5 MG, BID
  19. YASMIN [Suspect]
     Active Substance: DROSPIRENONE\ETHINYL ESTRADIOL
     Indication: MENOPAUSAL SYMPTOMS
  20. ALBUTEROL. [Concomitant]
     Active Substance: ALBUTEROL
     Dosage: 90 MCG 2 PUFFS EVERY 4 HOURS
     Route: 045
     Dates: start: 20040227
  21. LIDODERM [Concomitant]
     Active Substance: LIDOCAINE
     Indication: EPICONDYLITIS

REACTIONS (27)
  - Type 2 diabetes mellitus [None]
  - Coordination abnormal [Recovering/Resolving]
  - Visual impairment [Recovering/Resolving]
  - Pain [Recovering/Resolving]
  - Hypoaesthesia [Recovering/Resolving]
  - Visual field defect [Recovering/Resolving]
  - Disturbance in attention [Recovering/Resolving]
  - Hemiplegia [Recovering/Resolving]
  - Injury [Recovering/Resolving]
  - Headache [Recovering/Resolving]
  - Renal pain [None]
  - Hemiparesis [Recovering/Resolving]
  - VIIth nerve paralysis [Recovering/Resolving]
  - Aphasia [Recovering/Resolving]
  - Balance disorder [Recovering/Resolving]
  - Memory impairment [Recovering/Resolving]
  - Urinary incontinence [Recovering/Resolving]
  - Depression [None]
  - Judgement impaired [Recovering/Resolving]
  - Product use issue [None]
  - General physical health deterioration [Recovering/Resolving]
  - Anxiety [None]
  - Dysarthria [Recovering/Resolving]
  - Cerebrovascular accident [Recovering/Resolving]
  - Emotional distress [None]
  - Cognitive disorder [Recovering/Resolving]
  - Back pain [None]

NARRATIVE: CASE EVENT DATE: 20050414
